FAERS Safety Report 21962369 (Version 1)
Quarter: 2023Q1

REPORT INFORMATION
  Report Type: Report from Study
  Country: US (occurrence: US)
  Receive Date: 20230207
  Receipt Date: 20230207
  Transmission Date: 20230418
  Serious: No
  Sender: FDA-Public Use
  Company Number: US-ORG100014127-2022000269

PATIENT
  Age: 61 Year
  Sex: Female

DRUGS (7)
  1. LYSODREN [Suspect]
     Active Substance: MITOTANE
     Indication: Adrenocortical carcinoma
     Dosage: 06 TABLETS DAILY
     Route: 048
     Dates: start: 20220208
  2. LYSODREN [Suspect]
     Active Substance: MITOTANE
     Indication: Adrenocortical carcinoma
     Dosage: 02 TABLETS DAILY
     Route: 048
  3. LYSODREN [Suspect]
     Active Substance: MITOTANE
     Indication: Adrenocortical carcinoma
     Dosage: 3.5 TABLETS DAILY
     Route: 048
  4. Eliquis Tab 5 MG [Concomitant]
     Indication: Product used for unknown indication
  5. Hydrocort Tab 10 MG [Concomitant]
     Indication: Product used for unknown indication
  6. Nadolol Tab 20 MG [Concomitant]
     Indication: Product used for unknown indication
  7. Protonix tab 40 MG [Concomitant]
     Indication: Product used for unknown indication

REACTIONS (3)
  - Gait disturbance [Not Recovered/Not Resolved]
  - Nausea [Not Recovered/Not Resolved]
  - Headache [Not Recovered/Not Resolved]

NARRATIVE: CASE EVENT DATE: 20220209
